FAERS Safety Report 5919360-5 (Version None)
Quarter: 2008Q4

REPORT INFORMATION
  Report Type: 
  Country: None (occurrence: None)
  Receive Date: 20081015
  Receipt Date: 20081010
  Transmission Date: 20090506
  Serious: Yes (Hospitalization)
  Sender: FDA-Public Use
  Company Number: A0752034A

PATIENT
  Age: 10 Year
  Sex: Female
  Weight: 35 kg

DRUGS (2)
  1. SERETIDE [Suspect]
     Indication: BRONCHOSPASM
     Route: 055
     Dates: start: 20041001
  2. SINGULAIR [Concomitant]
     Dates: start: 20080924

REACTIONS (2)
  - BRONCHOSPASM [None]
  - DRUG INEFFECTIVE [None]
